FAERS Safety Report 12942913 (Version 2)
Quarter: 2016Q4

REPORT INFORMATION
  Report Type: Report from Study
  Country: JP (occurrence: JP)
  Receive Date: 20161115
  Receipt Date: 20161123
  Transmission Date: 20170207
  Serious: Yes (Hospitalization)
  Sender: FDA-Public Use
  Company Number: JP-BAYER-2016-213265

PATIENT
  Age: 63 Year
  Sex: Male
  Weight: 70 kg

DRUGS (11)
  1. CISPLATIN. [Concomitant]
     Active Substance: CISPLATIN
     Dosage: 27.5 MG, UNK
  2. URSODEOXYCHOLIC ACID [Concomitant]
     Active Substance: URSODIOL
     Dosage: 600 MG, QD
  3. NEXAVAR [Suspect]
     Active Substance: SORAFENIB
     Indication: HEPATOCELLULAR CARCINOMA
     Dosage: 200 MG, QD
     Route: 048
     Dates: start: 20161014, end: 201610
  4. LIPIODOL [Concomitant]
     Active Substance: ETHIODIZED OIL
  5. CISPLATIN. [Concomitant]
     Active Substance: CISPLATIN
     Dosage: 40 MG, UNK
  6. NEXAVAR [Suspect]
     Active Substance: SORAFENIB
     Indication: HEPATOCELLULAR CARCINOMA
     Dosage: 400 MG, QD
     Route: 048
     Dates: start: 20161017
  7. CISPLATIN. [Concomitant]
     Active Substance: CISPLATIN
     Dosage: 20 MG, UNK
  8. CISPLATIN. [Concomitant]
     Active Substance: CISPLATIN
     Dosage: 28 MG, UNK
  9. NEXAVAR [Suspect]
     Active Substance: SORAFENIB
     Indication: HEPATOCELLULAR CARCINOMA
     Dosage: 800 MG, QD
     Route: 048
     Dates: start: 20160921, end: 20160926
  10. NEXAVAR [Suspect]
     Active Substance: SORAFENIB
     Indication: HEPATOCELLULAR CARCINOMA
     Dosage: 200 MG, QD
     Route: 048
     Dates: start: 20161012, end: 20161013
  11. CISPLATIN. [Concomitant]
     Active Substance: CISPLATIN
     Dosage: 35 MG, UNK

REACTIONS (2)
  - Pyrexia [Recovered/Resolved]
  - Palmar-plantar erythrodysaesthesia syndrome [Recovered/Resolved]

NARRATIVE: CASE EVENT DATE: 20160926
